FAERS Safety Report 23242239 (Version 1)
Quarter: 2023Q4

REPORT INFORMATION
  Report Type: Spontaneous
  Country: IT (occurrence: IT)
  Receive Date: 20231129
  Receipt Date: 20231129
  Transmission Date: 20240109
  Serious: Yes (Disabling, Other)
  Sender: FDA-Public Use
  Company Number: None

PATIENT
  Age: 55 Year
  Sex: Male
  Weight: 56 kg

DRUGS (8)
  1. TALOFEN [Suspect]
     Active Substance: PROMAZINE HYDROCHLORIDE
     Indication: Psychomotor hyperactivity
     Dosage: 15-20 DROPS TID, THEN REDUCTION FROM 5 /10  DROPS/DAY
     Route: 048
     Dates: start: 20220729, end: 20230902
  2. RISPERIDONE [Suspect]
     Active Substance: RISPERIDONE
     Indication: Psychomotor hyperactivity
     Dosage: 0,5 G + 1 G
     Route: 048
     Dates: start: 20230104, end: 20231013
  3. OLANZAPINE [Suspect]
     Active Substance: OLANZAPINE
     Indication: Psychomotor hyperactivity
     Dosage: 5 MILLIGRAM, BID
     Route: 048
     Dates: start: 20220729, end: 20220917
  4. VALPROATE SODIUM [Concomitant]
     Active Substance: VALPROATE SODIUM
     Dosage: UNK
     Route: 065
  5. TRAZODONE HYDROCHLORIDE [Concomitant]
     Active Substance: TRAZODONE HYDROCHLORIDE
     Dosage: UNK
     Route: 065
  6. VALIUM [Concomitant]
     Active Substance: DIAZEPAM
     Dosage: UNK
     Route: 065
  7. HALOPERIDOL [Concomitant]
     Active Substance: HALOPERIDOL
     Dosage: UNK
     Route: 065
  8. RIVOTRIL [Concomitant]
     Active Substance: CLONAZEPAM
     Dosage: UNK
     Route: 065

REACTIONS (28)
  - Disability [Not Recovered/Not Resolved]
  - Memory impairment [Unknown]
  - Cardiac function test abnormal [Unknown]
  - Dizziness [Unknown]
  - Somnolence [Unknown]
  - Fatigue [Unknown]
  - Tremor [Unknown]
  - Tic [Unknown]
  - Dyskinesia [Unknown]
  - Agitation [Unknown]
  - Anxiety [Unknown]
  - Restlessness [Unknown]
  - Depression [Unknown]
  - Dry mouth [Unknown]
  - Abdominal discomfort [Unknown]
  - Constipation [Unknown]
  - White blood cell count decreased [Unknown]
  - Salivary hypersecretion [Unknown]
  - Dysphemia [Unknown]
  - Aphasia [Unknown]
  - Oesophageal motility test [Unknown]
  - Akathisia [Unknown]
  - Muscular weakness [Unknown]
  - Respiratory disorder [Unknown]
  - Hypophagia [Unknown]
  - Extrapyramidal disorder [Unknown]
  - Drug abuse [Unknown]
  - Medication error [Unknown]
